FAERS Safety Report 14944500 (Version 2)
Quarter: 2019Q1

REPORT INFORMATION
  Report Type: Spontaneous
  Country: PT (occurrence: PT)
  Receive Date: 20180529
  Receipt Date: 20190109
  Transmission Date: 20190417
  Serious: Yes (Hospitalization, Other)
  Sender: FDA-Public Use
  Company Number: PT-CONCORDIA PHARMACEUTICALS INC.-E2B_00012005

PATIENT
  Age: 55 Year
  Sex: Male

DRUGS (7)
  1. PREDNISOLONE. [Suspect]
     Active Substance: PREDNISOLONE
     Indication: IMMUNOSUPPRESSANT DRUG THERAPY
  2. PREDNISOLONE. [Suspect]
     Active Substance: PREDNISOLONE
     Dosage: 5 MG ALTERNATED WITH 2.5 (WEANING)
  3. MYCOPHENOLATE MOFETIL. [Suspect]
     Active Substance: MYCOPHENOLATE MOFETIL
     Indication: IMMUNOSUPPRESSANT DRUG THERAPY
  4. INSULIN [Concomitant]
     Active Substance: INSULIN NOS
     Indication: FULMINANT TYPE 1 DIABETES MELLITUS
  5. BASILIXIMAB [Suspect]
     Active Substance: BASILIXIMAB
     Indication: IMMUNOSUPPRESSANT DRUG THERAPY
     Dosage: INDUCTION THERAPY
  6. PREDNISOLONE. [Suspect]
     Active Substance: PREDNISOLONE
     Dosage: 5 MG ALTERNATED WITH 2.5 (WEANING)
  7. TACROLIMUS. [Suspect]
     Active Substance: TACROLIMUS
     Indication: IMMUNOSUPPRESSANT DRUG THERAPY
     Dosage: TARGET TROUGH LEVELS 5-8 NG/L

REACTIONS (10)
  - Escherichia bacteraemia [Unknown]
  - Leukopenia [Unknown]
  - Neutropenia [Unknown]
  - Seroma [Unknown]
  - Strongyloidiasis [Unknown]
  - Pulmonary mass [Unknown]
  - Clostridial infection [Unknown]
  - Eosinophilia [Unknown]
  - Lymphangiectasia [Unknown]
  - Acute kidney injury [Recovered/Resolved]
